APPROVED DRUG PRODUCT: RASAGILINE MESYLATE
Active Ingredient: RASAGILINE MESYLATE
Strength: EQ 1MG BASE
Dosage Form/Route: TABLET;ORAL
Application: A201950 | Product #002
Applicant: APOTEX INC
Approved: Sep 12, 2013 | RLD: No | RS: No | Type: DISCN